FAERS Safety Report 9342328 (Version 2)
Quarter: 2013Q3

REPORT INFORMATION
  Report Type: Spontaneous
  Country: US (occurrence: None)
  Receive Date: 20130607
  Receipt Date: 20130822
  Transmission Date: 20140515
  Serious: Yes (Other)
  Sender: FDA-Public Use
  Company Number: 54973 AE # 1383

PATIENT
  Age: 3 Month
  Sex: Male

DRUGS (1)
  1. HYLAND^S BABY TEETHING TABLETS [Suspect]
     Indication: TEETHING
     Dosage: 2 TABS 3 TIMES; 2 TABS PM

REACTIONS (1)
  - Convulsion [None]
